FAERS Safety Report 7674096-8 (Version None)
Quarter: 2011Q3

REPORT INFORMATION
  Report Type: 
  Country: None (occurrence: None)
  Receive Date: 20110810
  Receipt Date: 20110719
  Transmission Date: 20111222
  Serious: Yes (Death, Other)
  Sender: FDA-Public Use
  Company Number: PHHY2011US65726

PATIENT
  Age: 64 Year
  Sex: Male

DRUGS (11)
  1. CYCLOPHOSPHAMIDE [Suspect]
  2. VINCRISTINE [Suspect]
  3. LOPERAMIDE HCL [Concomitant]
     Indication: FREQUENT BOWEL MOVEMENTS
  4. NITAZOXANIDE [Concomitant]
     Indication: FREQUENT BOWEL MOVEMENTS
  5. DIPHENOXYLATE [Concomitant]
     Indication: FREQUENT BOWEL MOVEMENTS
  6. ATROPINE [Concomitant]
     Indication: FREQUENT BOWEL MOVEMENTS
  7. RITUXIMAB [Suspect]
  8. MESALAMINE [Concomitant]
     Indication: FREQUENT BOWEL MOVEMENTS
  9. OCTREOTIDE ACETATE [Suspect]
     Indication: FREQUENT BOWEL MOVEMENTS
  10. PREDNISONE [Suspect]
  11. IMMUNE GLOBULIN NOS [Concomitant]
     Indication: FREQUENT BOWEL MOVEMENTS

REACTIONS (7)
  - COLITIS [None]
  - DIARRHOEA [None]
  - PNEUMONIA [None]
  - SEPTIC SHOCK [None]
  - BLOOD IMMUNOGLOBULIN G DECREASED [None]
  - BLOOD IMMUNOGLOBULIN M DECREASED [None]
  - BLOOD IMMUNOGLOBULIN A DECREASED [None]
